FAERS Safety Report 10396427 (Version 1)
Quarter: 2014Q3

REPORT INFORMATION
  Report Type: Spontaneous
  Country: US (occurrence: US)
  Receive Date: 20140820
  Receipt Date: 20140820
  Transmission Date: 20150326
  Serious: No
  Sender: FDA-Public Use
  Company Number: US-BAXTER-2014BAX045993

PATIENT
  Age: 18 Year
  Sex: Female

DRUGS (2)
  1. PENICILLIN G POTASSIUM INJECTION, USP [Suspect]
     Active Substance: PENICILLIN G POTASSIUM
     Indication: STREPTOCOCCUS TEST POSITIVE
     Route: 042
     Dates: start: 20140725, end: 20140725
  2. PENICILLIN G POTASSIUM INJECTION, USP [Suspect]
     Active Substance: PENICILLIN G POTASSIUM
     Route: 042
     Dates: start: 20140725, end: 20140725

REACTIONS (3)
  - Burning sensation [Recovered/Resolved]
  - Exposure during pregnancy [Recovered/Resolved]
  - Infusion related reaction [Recovered/Resolved]

NARRATIVE: CASE EVENT DATE: 20140725
